FAERS Safety Report 24906452 (Version 1)
Quarter: 2025Q1

REPORT INFORMATION
  Report Type: Report from Study
  Country: US (occurrence: US)
  Receive Date: 20250130
  Receipt Date: 20250130
  Transmission Date: 20250408
  Serious: Yes (Other)
  Sender: BAYER HEALTHCARE PHARMACEUTICALS INC.
  Company Number: US-BAYER-2024A184125

PATIENT
  Age: 63 Year
  Sex: Female

DRUGS (2)
  1. STIVARGA [Suspect]
     Active Substance: REGORAFENIB MONOHYDRATE
     Indication: Gastrointestinal stromal tumour
     Dosage: 160 MG, QD, ON DAYS 1 THROUGH 21 OF EVERY 28 DAY CHEMOTHERAPY CYCLE
     Route: 048
     Dates: start: 20241217, end: 202412
  2. STIVARGA [Suspect]
     Active Substance: REGORAFENIB MONOHYDRATE
     Indication: Gastrointestinal stromal tumour
     Dosage: 120 MG, QD(3 TABLETS)
     Route: 048
     Dates: start: 202412

REACTIONS (6)
  - Gait inability [Recovering/Resolving]
  - Feeling hot [Recovering/Resolving]
  - Skin hypertrophy [Recovering/Resolving]
  - Palmar-plantar erythrodysaesthesia syndrome [Recovering/Resolving]
  - Plantar erythema [Recovering/Resolving]
  - Pain in extremity [Recovering/Resolving]

NARRATIVE: CASE EVENT DATE: 20241220
